FAERS Safety Report 24344797 (Version 3)
Quarter: 2024Q4

REPORT INFORMATION
  Report Type: Report from Study
  Country: CA (occurrence: CA)
  Receive Date: 20240920
  Receipt Date: 20241125
  Transmission Date: 20250115
  Serious: Yes (Disabling)
  Sender: NOVARTIS
  Company Number: CA-002147023-NVSC2024CA185099

PATIENT
  Age: 24 Year
  Sex: Male

DRUGS (3)
  1. KESIMPTA [Suspect]
     Active Substance: OFATUMUMAB
     Indication: Relapsing-remitting multiple sclerosis
     Dosage: 20MG/0.4ML, QMO (ONE INJECTION 1 TIME PER MONTH)
     Route: 058
     Dates: start: 20240905
  2. KESIMPTA [Suspect]
     Active Substance: OFATUMUMAB
     Indication: Multiple sclerosis
     Dosage: 20 MG
     Route: 058
  3. KESIMPTA [Suspect]
     Active Substance: OFATUMUMAB
     Dosage: 1 DOSAGE FORM, 1 INJECTION (20MG/0.4ML) WEEK 0,1,2,4 THEN ONCE A MONTH THEN
     Route: 058

REACTIONS (9)
  - Influenza like illness [Unknown]
  - Cough [Not Recovered/Not Resolved]
  - Oropharyngeal pain [Unknown]
  - Respiratory tract congestion [Unknown]
  - Headache [Unknown]
  - Palpitations [Recovered/Resolved]
  - Stress [Recovered/Resolved]
  - Influenza [Unknown]
  - Head discomfort [Unknown]

NARRATIVE: CASE EVENT DATE: 20240901
